FAERS Safety Report 21298037 (Version 1)
Quarter: 2022Q3

REPORT INFORMATION
  Report Type: Spontaneous
  Country: US (occurrence: US)
  Receive Date: 20220906
  Receipt Date: 20220906
  Transmission Date: 20221027
  Serious: Yes (Other)
  Sender: FDA-Public Use
  Company Number: US-BAYER-2022A123736

PATIENT
  Age: 39 Year
  Sex: Male

DRUGS (4)
  1. KOGENATE FS [Suspect]
     Active Substance: ANTIHEMOPHILIC FACTOR, HUMAN RECOMBINANT
     Dosage: 2500 IU
  2. KOGENATE FS [Suspect]
     Active Substance: ANTIHEMOPHILIC FACTOR, HUMAN RECOMBINANT
     Dosage: UNK, FOR THE RIGHT ANKLE BLED TREATMENT
     Dates: start: 20220813, end: 20220813
  3. KOGENATE FS [Suspect]
     Active Substance: ANTIHEMOPHILIC FACTOR, HUMAN RECOMBINANT
     Dosage: UNK, FOR THE RIGHT KNEE BLEED TREATMENT
     Dates: start: 20220816, end: 20220816
  4. KOGENATE FS [Suspect]
     Active Substance: ANTIHEMOPHILIC FACTOR, HUMAN RECOMBINANT
     Dosage: UNK, FOR THE RIGHT ANKLE AND KNEE BLEED TREATMENT
     Dates: start: 20220818, end: 20220818

REACTIONS (2)
  - Haemarthrosis [None]
  - Haemarthrosis [None]

NARRATIVE: CASE EVENT DATE: 20220813
